FAERS Safety Report 17407706 (Version 2)
Quarter: 2020Q1

REPORT INFORMATION
  Report Type: Spontaneous
  Country: FR (occurrence: FR)
  Receive Date: 20200212
  Receipt Date: 20200310
  Transmission Date: 20200409
  Serious: Yes (Death, Other)
  Sender: FDA-Public Use
  Company Number: FR-SA-2020SA034153

PATIENT
  Age: 41 Year
  Sex: Male

DRUGS (7)
  1. METHADONE [Suspect]
     Active Substance: METHADONE HYDROCHLORIDE
     Indication: PRODUCT USED FOR UNKNOWN INDICATION
     Route: 065
  2. ZOLPIDEM TARTRATE. [Suspect]
     Active Substance: ZOLPIDEM TARTRATE
     Route: 065
  3. SKENAN [Suspect]
     Active Substance: MORPHINE SULFATE
     Indication: DRUG ABUSE
     Route: 065
  4. METHAMPHETAMINE SACCHARATE. [Suspect]
     Active Substance: METHAMPHETAMINE SACCHARATE
     Indication: DRUG ABUSE
     Route: 065
  5. ALPRAZOLAM. [Suspect]
     Active Substance: ALPRAZOLAM
     Route: 065
  6. DEXTROMETHORPHAN [Suspect]
     Active Substance: DEXTROMETHORPHAN
     Indication: DRUG ABUSE
     Route: 065
  7. KETAMINE [Suspect]
     Active Substance: KETAMINE
     Indication: DRUG ABUSE
     Route: 065

REACTIONS (2)
  - Death [Fatal]
  - Drug abuse [Fatal]
